FAERS Safety Report 24631075 (Version 1)
Quarter: 2024Q4

REPORT INFORMATION
  Report Type: Spontaneous
  Country: SE (occurrence: SE)
  Receive Date: 20241118
  Receipt Date: 20241118
  Transmission Date: 20250115
  Serious: Yes (Other)
  Sender: BAYER HEALTHCARE PHARMACEUTICALS INC.
  Company Number: None

PATIENT
  Age: 51 Year
  Sex: Female

DRUGS (6)
  1. CIPROFLOXACIN [Suspect]
     Active Substance: CIPROFLOXACIN
     Dosage: UNK
     Route: 048
     Dates: start: 20240614, end: 20240614
  2. DIFFERIN [Concomitant]
     Active Substance: ADAPALENE
     Dosage: 1 MG
     Route: 061
     Dates: start: 20210310
  3. DULOXETINE KRKA [Concomitant]
     Dosage: 90MG X 1
     Route: 048
     Dates: start: 20230118
  4. VENLAFAXINE [Concomitant]
     Active Substance: VENLAFAXINE HYDROCHLORIDE
     Dosage: 75+37.5MG X 1
     Route: 048
     Dates: start: 20230118
  5. LOCOBASE LPL [Concomitant]
     Dosage: 254 MG, ONCE
     Route: 067
     Dates: start: 20210324
  6. NEXPLANON [Concomitant]
     Active Substance: ETONOGESTREL
     Dosage: 68 MG, CONT
     Route: 015
     Dates: start: 20161105

REACTIONS (2)
  - Anaphylactic reaction [Recovering/Resolving]
  - Chest pain [Recovering/Resolving]

NARRATIVE: CASE EVENT DATE: 20240614
